FAERS Safety Report 8276518-0 (Version None)
Quarter: 2012Q2

REPORT INFORMATION
  Report Type: 
  Country: None (occurrence: None)
  Receive Date: 20120412
  Receipt Date: 20120123
  Transmission Date: 20120825
  Serious: No
  Sender: FDA-Public Use
  Company Number: US-GLAXOSMITHKLINE-A0962716A

PATIENT
  Age: 60 Year
  Sex: Male
  Weight: 95 kg

DRUGS (8)
  1. JALYN [Suspect]
     Indication: BENIGN PROSTATIC HYPERPLASIA
     Dosage: 1CAP SINGLE DOSE
     Route: 048
     Dates: start: 20120119, end: 20120119
  2. DALMANE [Concomitant]
     Dosage: 30MG PER DAY
     Route: 048
     Dates: start: 20111101
  3. ZOCOR [Concomitant]
     Dosage: 40MG PER DAY
     Route: 048
     Dates: start: 20060101
  4. ABILIFY [Concomitant]
     Dosage: 10MG PER DAY
     Route: 048
     Dates: start: 20060601
  5. SEROQUEL [Concomitant]
     Dosage: 200MG FOUR TIMES PER DAY
     Route: 048
     Dates: start: 20111101
  6. LEXAPRO [Concomitant]
     Route: 048
  7. SYNTHROID [Concomitant]
     Dosage: 150MCG PER DAY
     Route: 048
     Dates: start: 20111101
  8. UNSPECIFIED MEDICATION [Concomitant]
     Dosage: 5MG WEEKLY
     Route: 048

REACTIONS (4)
  - HYPERURICAEMIA [None]
  - MICTURITION DISORDER [None]
  - URINARY INCONTINENCE [None]
  - POLLAKIURIA [None]
